FAERS Safety Report 18705522 (Version 2)
Quarter: 2021Q1

REPORT INFORMATION
  Report Type: Spontaneous
  Country: CZ (occurrence: CZ)
  Receive Date: 20210106
  Receipt Date: 20210128
  Transmission Date: 20210419
  Serious: Yes (Death)
  Sender: FDA-Public Use
  Company Number: CZ-ABBVIE-21K-217-3717886-00

PATIENT
  Sex: Male
  Weight: 73 kg

DRUGS (2)
  1. DUODOPA [Suspect]
     Active Substance: CARBIDOPA\LEVODOPA
     Indication: PARKINSON^S DISEASE
     Dosage: MORNING DOSE 15.5 ML, CONTINUOUS DOSE 7.6 ML, EXTRA DOSE 3 ML
     Route: 050
  2. DUODOPA [Suspect]
     Active Substance: CARBIDOPA\LEVODOPA

REACTIONS (3)
  - Pneumonia [Fatal]
  - Respiratory tract infection [Fatal]
  - COVID-19 [Fatal]
